FAERS Safety Report 11941440 (Version 3)
Quarter: 2016Q4

REPORT INFORMATION
  Report Type: Report from Study
  Country: US (occurrence: US)
  Receive Date: 20160122
  Receipt Date: 20161209
  Transmission Date: 20170206
  Serious: Yes (Hospitalization)
  Sender: FDA-Public Use
  Company Number: US-BIOGEN-2016BI00178434

PATIENT
  Age: 54 Year
  Sex: Female
  Weight: 63.11 kg

DRUGS (8)
  1. TECFIDERA [Suspect]
     Active Substance: DIMETHYL FUMARATE
     Indication: MULTIPLE SCLEROSIS
     Dosage: STARTING DOSE
     Route: 048
     Dates: start: 20150612, end: 20150618
  2. TECFIDERA [Suspect]
     Active Substance: DIMETHYL FUMARATE
     Dosage: MAINTENANCE DOSE
     Route: 048
     Dates: start: 20150619
  3. ZANAFLAX (NOS) [Concomitant]
     Indication: PRODUCT USED FOR UNKNOWN INDICATION
     Route: 065
  4. HYDROCODONE [Concomitant]
     Active Substance: HYDROCODONE
     Indication: PRODUCT USED FOR UNKNOWN INDICATION
     Route: 065
  5. PRISOLAME (NOS) [Concomitant]
     Indication: PRODUCT USED FOR UNKNOWN INDICATION
     Route: 065
  6. HYCOSAMINE [Concomitant]
     Indication: PRODUCT USED FOR UNKNOWN INDICATION
     Route: 065
  7. MODAFADILE (NOS) [Concomitant]
     Indication: PRODUCT USED FOR UNKNOWN INDICATION
     Route: 065
  8. SULFURAMAX (NOS) [Concomitant]
     Indication: PRODUCT USED FOR UNKNOWN INDICATION
     Route: 065

REACTIONS (7)
  - Feeding disorder [Unknown]
  - Malnutrition [Recovered/Resolved]
  - Gastrointestinal disorder [Recovered/Resolved]
  - Abasia [Unknown]
  - Nausea [Unknown]
  - Weight decreased [Unknown]
  - Dehydration [Unknown]

NARRATIVE: CASE EVENT DATE: 20160201
